FAERS Safety Report 8306248-8 (Version None)
Quarter: 2012Q2

REPORT INFORMATION
  Report Type: 
  Country: None (occurrence: None)
  Receive Date: 20120423
  Receipt Date: 20120417
  Transmission Date: 20120825
  Serious: No
  Sender: FDA-Public Use
  Company Number: US-PFIZER INC-2012097274

PATIENT
  Sex: Male

DRUGS (11)
  1. CYCLOSPORINE [Concomitant]
     Dosage: UNK
  2. LASIX [Concomitant]
     Dosage: UNK
  3. NIFEDIPINE [Concomitant]
     Dosage: UNK
  4. PRILOSEC [Concomitant]
     Dosage: UNK
  5. BACTRIM [Concomitant]
     Dosage: UNK
  6. PRAVACHOL [Concomitant]
     Dosage: UNK
  7. FLONASE [Concomitant]
     Dosage: UNK
  8. LATANOPROST [Suspect]
     Dosage: UNK
  9. ATENOLOL [Concomitant]
     Dosage: UNK
  10. CLONIDINE [Concomitant]
     Dosage: UNK
  11. MYCOPHENOLATE MOFETIL (CELLCEPT) [Concomitant]
     Dosage: UNK

REACTIONS (1)
  - INTRAOCULAR PRESSURE TEST ABNORMAL [None]
